FAERS Safety Report 10049602 (Version 1)
Quarter: 2014Q2

REPORT INFORMATION
  Report Type: Spontaneous
  Country: IT (occurrence: IT)
  Receive Date: 20140401
  Receipt Date: 20140401
  Transmission Date: 20141212
  Serious: Yes (Hospitalization)
  Sender: FDA-Public Use
  Company Number: PHHY2014IT038362

PATIENT
  Age: 63 Year
  Sex: Female

DRUGS (1)
  1. DICLOFENAC [Suspect]
     Indication: ARTHRALGIA
     Dosage: UNK UKN, UNK
     Dates: start: 20130903, end: 20130903

REACTIONS (3)
  - Sopor [Recovering/Resolving]
  - Tachycardia [Recovering/Resolving]
  - Hypotension [Recovering/Resolving]
